APPROVED DRUG PRODUCT: ALAMAST
Active Ingredient: PEMIROLAST POTASSIUM
Strength: 0.1%
Dosage Form/Route: SOLUTION/DROPS;OPHTHALMIC
Application: N021079 | Product #001
Applicant: SANTEN INC
Approved: Sep 24, 1999 | RLD: No | RS: No | Type: DISCN